FAERS Safety Report 9799197 (Version 2)
Quarter: 2014Q1

REPORT INFORMATION
  Report Type: Spontaneous
  Country: US (occurrence: US)
  Receive Date: 20140106
  Receipt Date: 20140106
  Transmission Date: 20141002
  Serious: No
  Sender: FDA-Public Use
  Company Number: US-GILEAD-2010-0033993

PATIENT
  Age: 41 Year
  Sex: Female

DRUGS (4)
  1. LETAIRIS [Suspect]
     Indication: PULMONARY ARTERIAL HYPERTENSION
     Route: 048
     Dates: start: 201008
  2. SILDENAFIL [Concomitant]
  3. COUMADIN [Concomitant]
  4. FUROSEMIDE [Concomitant]

REACTIONS (1)
  - Transaminases increased [Unknown]
